FAERS Safety Report 6013248-X (Version None)
Quarter: 2008Q4

REPORT INFORMATION
  Report Type: 
  Country: None (occurrence: None)
  Receive Date: 20081218
  Receipt Date: 20081218
  Transmission Date: 20090506
  Serious: Yes (Life-Threatening, Hospitalization, Other)
  Sender: FDA-Public Use
  Company Number: None

PATIENT
  Age: 37 Year
  Sex: Female
  Weight: 58.9676 kg

DRUGS (1)
  1. CYMBALTA [Suspect]
     Indication: FIBROMYALGIA
     Dosage: 60MG  1X DAILY PO
     Route: 048
     Dates: start: 20060626, end: 20070215

REACTIONS (2)
  - DETOXIFICATION [None]
  - FEELING ABNORMAL [None]
